FAERS Safety Report 20939520 (Version 7)
Quarter: 2023Q4

REPORT INFORMATION
  Report Type: Report from Study
  Country: IT (occurrence: IT)
  Receive Date: 20220609
  Receipt Date: 20231106
  Transmission Date: 20240110
  Serious: Yes (Hospitalization, Other)
  Sender: FDA-Public Use
  Company Number: IT-UCBSA-2022029571

PATIENT
  Age: 35 Year
  Sex: Male

DRUGS (4)
  1. LEVETIRACETAM [Suspect]
     Active Substance: LEVETIRACETAM
     Indication: Epilepsy
     Dosage: 3TAB OF 500MG IN MORNING,3TAB OF 500MG IN EVENIN
     Route: 065
  2. LEVETIRACETAM [Suspect]
     Active Substance: LEVETIRACETAM
     Dosage: 500 MILLIGRAM 60 FILM-COATED TABLETS
     Route: 065
  3. TEGRETOL [Concomitant]
     Active Substance: CARBAMAZEPINE
     Indication: Product used for unknown indication
     Dosage: UNK
     Route: 065
  4. CENOBAMATE [Concomitant]
     Active Substance: CENOBAMATE
     Indication: Product used for unknown indication
     Dosage: UNK
     Route: 065

REACTIONS (20)
  - Coccygectomy [Unknown]
  - Spinal cord operation [Unknown]
  - Spinal pain [Unknown]
  - Petit mal epilepsy [Not Recovered/Not Resolved]
  - Spinal cord injury [Unknown]
  - Seizure [Unknown]
  - Groin pain [Not Recovered/Not Resolved]
  - Discomfort [Not Recovered/Not Resolved]
  - Drug resistance [Unknown]
  - Sluggishness [Unknown]
  - Lung disorder [Unknown]
  - Muscle strain [Unknown]
  - COVID-19 [Recovered/Resolved]
  - SARS-CoV-2 test positive [Unknown]
  - Pelvic pain [Unknown]
  - Spinal disorder [Unknown]
  - Fall [Unknown]
  - Gait disturbance [Unknown]
  - Cough [Unknown]
  - Asthenia [Unknown]

NARRATIVE: CASE EVENT DATE: 20211101
